FAERS Safety Report 14246343 (Version 1)
Quarter: 2017Q4

REPORT INFORMATION
  Report Type: Spontaneous
  Country: US (occurrence: US)
  Receive Date: 20171204
  Receipt Date: 20171204
  Transmission Date: 20180321
  Serious: Yes (Other)
  Sender: FDA-Public Use
  Company Number: US-TEVA-2017-US-827211

PATIENT
  Sex: Male

DRUGS (6)
  1. CARBOPLATIN. [Suspect]
     Active Substance: CARBOPLATIN
     Indication: BRAIN NEOPLASM MALIGNANT
     Dates: start: 20170918, end: 20170918
  2. TAXOL [Suspect]
     Active Substance: PACLITAXEL
     Indication: BRAIN NEOPLASM MALIGNANT
     Dates: start: 20170918, end: 20170918
  3. TAXOL [Suspect]
     Active Substance: PACLITAXEL
     Indication: TONSIL CANCER
     Dates: start: 20170911, end: 20170911
  4. CARBOPLATIN. [Suspect]
     Active Substance: CARBOPLATIN
     Indication: TONSIL CANCER
     Dates: start: 20170911, end: 20170911
  5. CARBOPLATIN. [Suspect]
     Active Substance: CARBOPLATIN
     Indication: LUNG NEOPLASM MALIGNANT
     Dates: start: 20170925, end: 20170925
  6. TAXOL [Suspect]
     Active Substance: PACLITAXEL
     Indication: LUNG NEOPLASM MALIGNANT
     Dates: start: 20170925, end: 20170925

REACTIONS (2)
  - Pulmonary mass [Unknown]
  - Intracranial mass [Unknown]
